FAERS Safety Report 9262637 (Version 1)
Quarter: 2013Q2

REPORT INFORMATION
  Report Type: Spontaneous
  Country: US (occurrence: None)
  Receive Date: 20130426
  Receipt Date: 20130426
  Transmission Date: 20140414
  Serious: Yes (Other)
  Sender: FDA-Public Use
  Company Number: None

PATIENT
  Age: 50 None
  Sex: 0

DRUGS (1)
  1. HYDROXYCHLOROQUINE [Suspect]
     Indication: SYSTEMIC LUPUS ERYTHEMATOSUS
     Route: 048
     Dates: start: 2009, end: 200906

REACTIONS (5)
  - Headache [None]
  - Fatigue [None]
  - Flushing [None]
  - Blood pressure increased [None]
  - Product substitution issue [None]
